FAERS Safety Report 7984765-8 (Version None)
Quarter: 2011Q4

REPORT INFORMATION
  Report Type: 
  Country: None (occurrence: None)
  Receive Date: 20111216
  Receipt Date: 20111209
  Transmission Date: 20120403
  Serious: Yes (Hospitalization, Other)
  Sender: FDA-Public Use
  Company Number: GR-ABBOTT-11P-066-0882446-00

PATIENT
  Sex: Female
  Weight: 16.6 kg

DRUGS (2)
  1. CLARITHROMYCIN [Suspect]
     Indication: STREPTOCOCCAL INFECTION
     Route: 048
     Dates: start: 20111202, end: 20111203
  2. JUNIOR C OF POWER HEALTH [Concomitant]
     Indication: VITAMIN C
     Dosage: 1 CANDY PER DAY
     Route: 048
     Dates: start: 20111201, end: 20111203

REACTIONS (7)
  - PETECHIAE [None]
  - RASH [None]
  - HEADACHE [None]
  - IDIOPATHIC THROMBOCYTOPENIC PURPURA [None]
  - ECCHYMOSIS [None]
  - PLATELET COUNT DECREASED [None]
  - RASH GENERALISED [None]
